FAERS Safety Report 11800249 (Version 1)
Quarter: 2015Q4

REPORT INFORMATION
  Report Type: Spontaneous
  Country: US (occurrence: US)
  Receive Date: 20151203
  Receipt Date: 20151203
  Transmission Date: 20160305
  Serious: Yes (Other)
  Sender: FDA-Public Use
  Company Number: US-AMGEN-USASP2015126274

PATIENT
  Age: 72 Year
  Sex: Female

DRUGS (3)
  1. PROLIA [Suspect]
     Active Substance: DENOSUMAB
     Indication: PRODUCT USED FOR UNKNOWN INDICATION
     Dosage: UNK
     Route: 065
  2. TRAMADOL. [Concomitant]
     Active Substance: TRAMADOL
  3. MELOXICAM. [Concomitant]
     Active Substance: MELOXICAM

REACTIONS (15)
  - Dysphagia [Unknown]
  - Grip strength decreased [Unknown]
  - Pain in extremity [Unknown]
  - Gait disturbance [Unknown]
  - Myalgia [Unknown]
  - Back pain [Unknown]
  - Nausea [Unknown]
  - Intervertebral disc disorder [Unknown]
  - Rib fracture [Unknown]
  - Tooth disorder [Unknown]
  - Hypoaesthesia [Unknown]
  - Ear congestion [Unknown]
  - Dyspnoea [Unknown]
  - Pain in jaw [Unknown]
  - Bone pain [Unknown]

NARRATIVE: CASE EVENT DATE: 201507
